FAERS Safety Report 15556872 (Version 1)
Quarter: 2018Q4

REPORT INFORMATION
  Report Type: Spontaneous
  Country: US (occurrence: US)
  Receive Date: 20181026
  Receipt Date: 20181026
  Transmission Date: 20190205
  Serious: Yes (Other)
  Sender: FDA-Public Use
  Company Number: US-SHIRE-US201840294

PATIENT

DRUGS (1)
  1. GAMMAGARD LIQUID [Suspect]
     Active Substance: HUMAN IMMUNOGLOBULIN G
     Indication: PRODUCT USED FOR UNKNOWN INDICATION
     Dosage: 40 G, UNK
     Route: 042
     Dates: start: 20181015

REACTIONS (5)
  - Infusion site extravasation [Unknown]
  - Vein disorder [Unknown]
  - Infusion site warmth [Unknown]
  - Infusion site pain [Unknown]
  - Cellulitis [Unknown]
